FAERS Safety Report 8903468 (Version 4)
Quarter: 2013Q2

REPORT INFORMATION
  Report Type: Report from Study
  Country: MX (occurrence: MX)
  Receive Date: 20121113
  Receipt Date: 20130430
  Transmission Date: 20140414
  Serious: Yes (Hospitalization)
  Sender: FDA-Public Use
  Company Number: PHHY2012MX104436

PATIENT
  Age: 76 Year
  Sex: Female

DRUGS (9)
  1. CO-DIOVAN [Suspect]
     Indication: HYPERTENSION
     Dosage: 1 DF (160 MG VALS/ 12.5 MG HCTZ), DAILY
     Route: 048
     Dates: start: 20100831
  2. CO-DIOVAN [Suspect]
     Dosage: 1 DF (80 MG VALS /12.5 MG HCTZ), DAILY
     Route: 048
     Dates: start: 20111011
  3. CO-DIOVAN [Suspect]
     Dosage: 1 DF (80 MG VALS /12.5 MG HCTZ), DAILY
     Route: 048
     Dates: start: 20121030
  4. ATEMPERATOR [Concomitant]
     Indication: CONVULSION
     Dosage: 2 DF, DAILY
     Dates: start: 2002
  5. HALRACK [Concomitant]
     Indication: DIABETES MELLITUS
     Dosage: 1 DF, DAILY
     Dates: start: 201205
  6. INSULIN [Concomitant]
     Indication: DIABETES MELLITUS
     Dosage: 35 IU, (20 IU MORNING AND 15 IU AT NIGHT)
     Dates: start: 2009
  7. DIABION [Concomitant]
     Indication: DIABETES MELLITUS
     Dosage: 1 DF, DAILY
     Dates: start: 2009
  8. PRAVASTATIN [Concomitant]
     Indication: BLOOD CHOLESTEROL ABNORMAL
     Dosage: 1 DF, AT THE NIGHT
     Dates: start: 201206
  9. JALRA [Concomitant]
     Indication: DIABETES MELLITUS
     Dosage: 1 DF, DAILY
     Dates: start: 2011

REACTIONS (8)
  - Salmonellosis [Recovered/Resolved]
  - Diarrhoea [Recovered/Resolved]
  - Flatulence [Recovered/Resolved]
  - Constipation [Not Recovered/Not Resolved]
  - Faeces hard [Not Recovered/Not Resolved]
  - Arthralgia [Not Recovered/Not Resolved]
  - Nasopharyngitis [Recovered/Resolved]
  - Cough [Recovered/Resolved]
